FAERS Safety Report 6431700-X (Version None)
Quarter: 2009Q4

REPORT INFORMATION
  Report Type: 
  Country: None (occurrence: None)
  Receive Date: 20091103
  Receipt Date: 20091019
  Transmission Date: 20100525
  Serious: Yes (Hospitalization)
  Sender: FDA-Public Use
  Company Number: 02100-JPN-05-0499

PATIENT
  Age: 80 Year
  Sex: Female
  Weight: 58.8 kg

DRUGS (6)
  1. PLETAL [Suspect]
     Indication: CEREBRAL INFARCTION
     Dosage: 81 MG, QD ORAL
     Route: 048
     Dates: start: 20050115, end: 20051012
  2. KARY UNI (PIRENOXINE) [Concomitant]
  3. PRAVASTATIN [Concomitant]
  4. NIVADIL (NILVADIPINE) [Concomitant]
  5. SIGMART (NICORANDIL) [Concomitant]
  6. SEDAGASTON (LEVOGLUTAMIDE, SODIUM GUALENATE) [Concomitant]

REACTIONS (8)
  - BLOOD TRIGLYCERIDES INCREASED [None]
  - CEREBRAL INFARCTION [None]
  - GRIP STRENGTH DECREASED [None]
  - HYPOAESTHESIA [None]
  - HYPOAESTHESIA ORAL [None]
  - MUSCULAR WEAKNESS [None]
  - SENSATION OF HEAVINESS [None]
  - TRANSIENT ISCHAEMIC ATTACK [None]
